FAERS Safety Report 4554378-9 (Version None)
Quarter: 2004Q4

REPORT INFORMATION
  Report Type: 
  Country: None (occurrence: None)
  Receive Date: 20041222
  Receipt Date: 20040908
  Transmission Date: 20050328
  Serious: No
  Sender: FDA-Public Use
  Company Number: 207896

PATIENT
  Sex: Female

DRUGS (3)
  1. AVASTIN [Suspect]
     Indication: COLON CANCER METASTATIC
     Dosage: Q3W, INTRAVENOUS
     Route: 042
  2. HERCEPTIN [Suspect]
     Dosage: INTRAVENOUS
     Route: 042
  3. OXALIPLATIN (OXALIPLATIN) [Concomitant]

REACTIONS (1)
  - PLATELET COUNT DECREASED [None]
